FAERS Safety Report 6679596-5 (Version None)
Quarter: 2010Q2

REPORT INFORMATION
  Report Type: 
  Country: None (occurrence: None)
  Receive Date: 20100413
  Receipt Date: 20100409
  Transmission Date: 20101027
  Serious: Yes (Other)
  Sender: FDA-Public Use
  Company Number: US-ASTRAZENECA-2010SE15793

PATIENT
  Sex: Female

DRUGS (2)
  1. NEXIUM [Suspect]
     Indication: GASTRIC ANTRAL VASCULAR ECTASIA
     Route: 048
     Dates: start: 20080101, end: 20100301
  2. NEXIUM [Suspect]
     Route: 048
     Dates: start: 20100301

REACTIONS (4)
  - HAEMOGLOBIN DECREASED [None]
  - HAEMORRHAGE [None]
  - MINERAL SUPPLEMENTATION [None]
  - TRANSFUSION [None]
